FAERS Safety Report 9705776 (Version 1)
Quarter: 2013Q4

REPORT INFORMATION
  Report Type: Spontaneous
  Country: US (occurrence: US)
  Receive Date: 20131122
  Receipt Date: 20131122
  Transmission Date: 20140711
  Serious: No
  Sender: FDA-Public Use
  Company Number: US-GILEAD-2008-0018052

PATIENT
  Sex: Female
  Weight: 56.25 kg

DRUGS (7)
  1. LETAIRIS [Suspect]
     Indication: PULMONARY ARTERIAL HYPERTENSION
     Route: 048
  2. PLAQUENIL [Concomitant]
     Route: 048
  3. CELEBREX [Concomitant]
     Route: 048
  4. BUSPAR [Concomitant]
     Route: 048
  5. CITALOPRAM [Concomitant]
     Route: 048
  6. ACIPHEX [Concomitant]
     Route: 048
  7. LEVOXYL [Concomitant]
     Route: 048

REACTIONS (1)
  - Liver function test abnormal [Unknown]
